FAERS Safety Report 11769502 (Version 1)
Quarter: 2015Q4

REPORT INFORMATION
  Report Type: Spontaneous
  Country: HR (occurrence: HR)
  Receive Date: 20151123
  Receipt Date: 20151123
  Transmission Date: 20160304
  Serious: Yes (Hospitalization, Other)
  Sender: FDA-Public Use
  Company Number: HR-TEVA-609094ISR

PATIENT
  Age: 48 Year
  Sex: Female
  Weight: 69 kg

DRUGS (4)
  1. UROMITEXAN [Concomitant]
     Active Substance: MESNA
     Indication: LEIOMYOSARCOMA
     Dosage: 3275 MILLIGRAM DAILY;
     Route: 048
  2. HOLOXAN [Concomitant]
     Active Substance: IFOSFAMIDE
     Dosage: 2730 MILLIGRAM DAILY;
     Route: 041
  3. IBADRON [Concomitant]
     Dosage: 50 MILLIGRAM DAILY;
     Route: 048
  4. DOXORUBICIN PLIVA [Suspect]
     Active Substance: DOXORUBICIN
     Indication: LEIOMYOSARCOMA
     Dosage: 35 MILLIGRAM DAILY;
     Route: 041
     Dates: start: 20150720, end: 20150720

REACTIONS (4)
  - Application site necrosis [Not Recovered/Not Resolved]
  - Subcutaneous abscess [Not Recovered/Not Resolved]
  - Application site discolouration [Not Recovered/Not Resolved]
  - Application site erythema [Not Recovered/Not Resolved]

NARRATIVE: CASE EVENT DATE: 20150902
